FAERS Safety Report 7022963 (Version 4)
Quarter: 2013Q4

REPORT INFORMATION
  Report Type: Report from Study
  Country: NL (occurrence: NL)
  Receive Date: 20090615
  Receipt Date: 20131011
  Transmission Date: 20140711
  Serious: Yes (Hospitalization)
  Sender: FDA-Public Use
  Company Number: NL-ROCHE-636051

PATIENT
  Age: 62 Year
  Sex: 0
  Weight: 82 kg

DRUGS (11)
  1. CAPECITABINE [Suspect]
     Indication: GASTRIC CANCER
     Dosage: LAST DOSE PRIOR TO SAE: 27 NOVEMBER 2008, TWICE DAILY FOR 2 WEEKS AND BID 5 X PER WEEK FOR 5 WEEKS
     Route: 048
     Dates: start: 20081106, end: 20090531
  2. CISPLATIN [Suspect]
     Indication: GASTRIC CANCER
     Dosage: LAST DOSE PRIOR TO SAE: 27/05/2009, ONCE IN THREE WEEKS FOR 5 WEEKS
     Route: 042
     Dates: start: 20081106, end: 20090531
  3. EPIRUBICIN [Suspect]
     Indication: GASTRIC CANCER
     Route: 042
     Dates: start: 20081106, end: 20090531
  4. GLICLAZIDE [Concomitant]
     Dosage: REPORTED 1 X DD 80 MG
     Route: 048
  5. METFORMIN [Concomitant]
     Dosage: REPORTED 1 X DD 500 MG
     Route: 048
  6. SIMVASTATINE [Concomitant]
     Dosage: REPORTED 1 X DD 40 MG
     Route: 048
  7. ACC [Concomitant]
     Dosage: REPORTED 1 X DD 20 MG
     Route: 048
  8. OMEPRAZOLE [Concomitant]
     Dosage: REPORTED 1 X DD 40 MG
     Route: 048
  9. SELOKEEN [Concomitant]
  10. INSULIN [Concomitant]
  11. COLCHICINE [Concomitant]

REACTIONS (6)
  - Renal failure [Not Recovered/Not Resolved]
  - Hyperglycaemia [Not Recovered/Not Resolved]
  - Nausea [Recovered/Resolved]
  - Vomiting [Not Recovered/Not Resolved]
  - Diarrhoea [Not Recovered/Not Resolved]
  - Dehydration [Not Recovered/Not Resolved]
